FAERS Safety Report 17766816 (Version 3)
Quarter: 2020Q3

REPORT INFORMATION
  Report Type: Spontaneous
  Country: US (occurrence: US)
  Receive Date: 20200511
  Receipt Date: 20200806
  Transmission Date: 20201102
  Serious: Yes (Death, Hospitalization, Other)
  Sender: FDA-Public Use
  Company Number: US-SHIRE-US202015772

PATIENT
  Age: 64 Year
  Sex: Female

DRUGS (8)
  1. GATTEX [Suspect]
     Active Substance: TEDUGLUTIDE\WATER
     Indication: SHORT-BOWEL SYNDROME
     Dosage: 0.1305 UNIT UNKNOWN, 1X/DAY:QD
     Route: 058
     Dates: start: 20191218
  2. GATTEX [Suspect]
     Active Substance: TEDUGLUTIDE\WATER
     Indication: SHORT-BOWEL SYNDROME
     Dosage: 0.1305 UNIT UNKNOWN, 1X/DAY:QD
     Route: 058
     Dates: start: 20191218
  3. GATTEX [Suspect]
     Active Substance: TEDUGLUTIDE\WATER
     Indication: SHORT-BOWEL SYNDROME
     Dosage: 0.1305 UNIT UNKNOWN, 1X/DAY:QD
     Route: 058
     Dates: start: 20191218
  4. GATTEX [Suspect]
     Active Substance: TEDUGLUTIDE\WATER
     Dosage: 0.1305 UNIT UNKNOWN, 1X/DAY:QD
     Route: 058
     Dates: start: 20200103
  5. GATTEX [Suspect]
     Active Substance: TEDUGLUTIDE\WATER
     Indication: SHORT-BOWEL SYNDROME
     Dosage: 0.1305 UNIT UNKNOWN, 1X/DAY:QD
     Route: 058
     Dates: start: 20191218
  6. GATTEX [Suspect]
     Active Substance: TEDUGLUTIDE\WATER
     Dosage: 0.1305 UNIT UNKNOWN, 1X/DAY:QD
     Route: 058
     Dates: start: 20200103
  7. GATTEX [Suspect]
     Active Substance: TEDUGLUTIDE\WATER
     Dosage: 0.1305 UNIT UNKNOWN, 1X/DAY:QD
     Route: 058
     Dates: start: 20200103
  8. GATTEX [Suspect]
     Active Substance: TEDUGLUTIDE\WATER
     Dosage: 0.1305 UNIT UNKNOWN, 1X/DAY:QD
     Route: 058
     Dates: start: 20200103

REACTIONS (3)
  - Death [Fatal]
  - Pneumonia [Recovered/Resolved]
  - Hospitalisation [Unknown]

NARRATIVE: CASE EVENT DATE: 20200324
